FAERS Safety Report 6159123-1 (Version None)
Quarter: 2009Q2

REPORT INFORMATION
  Report Type: 
  Country: None (occurrence: None)
  Receive Date: 20090417
  Receipt Date: 20090407
  Transmission Date: 20091009
  Serious: Yes (Other)
  Sender: FDA-Public Use
  Company Number: CA-JNJFOC-20090402109

PATIENT
  Sex: Male
  Weight: 77.2 kg

DRUGS (2)
  1. REMICADE [Suspect]
     Dosage: 58 DOSES
     Route: 042
  2. REMICADE [Suspect]
     Indication: DRUG USE FOR UNKNOWN INDICATION
     Route: 042

REACTIONS (1)
  - VITREOUS DETACHMENT [None]
